FAERS Safety Report 17366751 (Version 2)
Quarter: 2020Q2

REPORT INFORMATION
  Report Type: Spontaneous
  Country: US (occurrence: US)
  Receive Date: 20200204
  Receipt Date: 20200610
  Transmission Date: 20200713
  Serious: Yes (Other)
  Sender: FDA-Public Use
  Company Number: US-PFIZER INC-2019430214

PATIENT
  Age: 70 Year
  Sex: Male

DRUGS (1)
  1. IBRANCE [Suspect]
     Active Substance: PALBOCICLIB
     Indication: PROSTATE CANCER
     Dosage: 100 MG, UNK

REACTIONS (4)
  - Pneumonia [Unknown]
  - Product use in unapproved indication [Unknown]
  - Off label use [Unknown]
  - Lower limb fracture [Unknown]
